FAERS Safety Report 20710140 (Version 1)
Quarter: 2022Q2

REPORT INFORMATION
  Report Type: Spontaneous
  Country: US (occurrence: US)
  Receive Date: 20220414
  Receipt Date: 20220414
  Transmission Date: 20220721
  Serious: No
  Sender: FDA-Public Use
  Company Number: US-PFIZER INC-202100944364

PATIENT
  Age: 28 Year
  Sex: Male
  Weight: 66.22 kg

DRUGS (1)
  1. CHANTIX [Suspect]
     Active Substance: VARENICLINE TARTRATE
     Indication: Smoking cessation therapy
     Dosage: UNK
     Route: 048
     Dates: end: 202107

REACTIONS (3)
  - Feeling abnormal [Unknown]
  - Product dose omission issue [Unknown]
  - Recalled product administered [Unknown]
